FAERS Safety Report 23757804 (Version 2)
Quarter: 2024Q4

REPORT INFORMATION
  Report Type: Spontaneous
  Country: DE (occurrence: DE)
  Receive Date: 20240418
  Receipt Date: 20241025
  Transmission Date: 20250114
  Serious: Yes (Death)
  Sender: GENMAB
  Company Number: SE-ABBVIE-5697062

PATIENT
  Sex: Male

DRUGS (1)
  1. EPCORITAMAB [Suspect]
     Active Substance: EPCORITAMAB
     Indication: Diffuse large B-cell lymphoma
     Route: 058

REACTIONS (1)
  - Death [Fatal]
